FAERS Safety Report 9298088 (Version 1)
Quarter: 2013Q2

REPORT INFORMATION
  Report Type: Spontaneous
  Country: US (occurrence: US)
  Receive Date: 20130520
  Receipt Date: 20130520
  Transmission Date: 20140414
  Serious: No
  Sender: FDA-Public Use
  Company Number: US-BAYER-2013-060877

PATIENT
  Sex: Female
  Weight: 62.13 kg

DRUGS (7)
  1. BETASERON [Suspect]
     Dosage: UNK
     Dates: start: 200511, end: 201302
  2. NEURONTIN [Concomitant]
     Dosage: UNK
  3. CINNAMON [Concomitant]
     Dosage: UNK
  4. CHONDROITIN W/GLUCOSAMINE [Concomitant]
  5. FISH OIL [Concomitant]
  6. ALEVE GELCAPS [Concomitant]
     Dosage: UNK
  7. CRANBERRY [Concomitant]

REACTIONS (2)
  - Injection site pain [Unknown]
  - Injection site erythema [Unknown]
